FAERS Safety Report 18467337 (Version 1)
Quarter: 2020Q4

REPORT INFORMATION
  Report Type: Spontaneous
  Country: US (occurrence: US)
  Receive Date: 20201104
  Receipt Date: 20201104
  Transmission Date: 20210114
  Serious: Yes (Hospitalization)
  Sender: FDA-Public Use
  Company Number: None

PATIENT
  Age: 30 Year
  Sex: Male
  Weight: 112 kg

DRUGS (2)
  1. GABAPENTIN (GABAPENTIN 600MG TAB) [Suspect]
     Active Substance: GABAPENTIN
     Indication: ANXIETY
     Route: 048
  2. GABAPENTIN (GABAPENTIN 600MG TAB) [Suspect]
     Active Substance: GABAPENTIN
     Indication: ALCOHOLISM

REACTIONS (2)
  - Sedation [None]
  - Depression [None]

NARRATIVE: CASE EVENT DATE: 20200731
